FAERS Safety Report 8477611-X (Version None)
Quarter: 2012Q2

REPORT INFORMATION
  Report Type: 
  Country: None (occurrence: None)
  Receive Date: 20120620
  Receipt Date: 20120615
  Transmission Date: 20120825
  Serious: Yes (Hospitalization, Disabling, Other)
  Sender: FDA-Public Use
  Company Number: 2012SP011823

PATIENT
  Age: 46 Year
  Sex: Female
  Weight: 74.8435 kg

DRUGS (1)
  1. NUVARING [Suspect]
     Indication: MENORRHAGIA
     Dates: start: 20081101, end: 20090313

REACTIONS (28)
  - MIGRAINE [None]
  - CARDIOVASCULAR DISORDER [None]
  - CEREBROVASCULAR ACCIDENT [None]
  - AMNESIA [None]
  - ANEURYSM [None]
  - IRRITABLE BOWEL SYNDROME [None]
  - GAIT DISTURBANCE [None]
  - COGNITIVE DISORDER [None]
  - EMOTIONAL DISORDER [None]
  - BLOOD DISORDER [None]
  - HYPERCOAGULATION [None]
  - CHOLELITHIASIS [None]
  - OVARIAN CYST [None]
  - TRANSIENT ISCHAEMIC ATTACK [None]
  - ILL-DEFINED DISORDER [None]
  - MYOCARDIAL INFARCTION [None]
  - CEREBROVASCULAR DISORDER [None]
  - HEART RATE IRREGULAR [None]
  - GASTRIC DISORDER [None]
  - CEREBRAL THROMBOSIS [None]
  - BRAIN NEOPLASM [None]
  - THROMBOSIS [None]
  - CONVULSION [None]
  - MENTAL DISORDER [None]
  - MACULAR DEGENERATION [None]
  - ANGINA PECTORIS [None]
  - CEREBRAL HAEMORRHAGE [None]
  - PORTAL VEIN THROMBOSIS [None]
